FAERS Safety Report 16146857 (Version 1)
Quarter: 2019Q2

REPORT INFORMATION
  Report Type: Spontaneous
  Country: US (occurrence: US)
  Receive Date: 20190402
  Receipt Date: 20190402
  Transmission Date: 20190711
  Serious: Yes (Other)
  Sender: FDA-Public Use
  Company Number: US-TEVA-2019-US-1031237

PATIENT
  Sex: Female
  Weight: 57 kg

DRUGS (3)
  1. PROVIGIL [Suspect]
     Active Substance: MODAFINIL
     Indication: NARCOLEPSY
     Route: 065
  2. PROVIGIL [Suspect]
     Active Substance: MODAFINIL
     Indication: RHEUMATOID ARTHRITIS
  3. PROVIGIL [Suspect]
     Active Substance: MODAFINIL
     Indication: ADRENAL INSUFFICIENCY

REACTIONS (9)
  - Post procedural complication [Unknown]
  - Drug ineffective [Unknown]
  - Muscle atrophy [Unknown]
  - Ill-defined disorder [Unknown]
  - Product use in unapproved indication [Unknown]
  - Hip arthroplasty [Unknown]
  - Pain [Unknown]
  - Fatigue [Unknown]
  - Weight decreased [Unknown]
